FAERS Safety Report 24074944 (Version 1)
Quarter: 2024Q3

REPORT INFORMATION
  Report Type: Spontaneous
  Country: US (occurrence: None)
  Receive Date: 20240710
  Receipt Date: 20240710
  Transmission Date: 20241017
  Serious: Yes (Life-Threatening, Hospitalization, Disabling)
  Sender: Public
  Company Number: None

PATIENT
  Age: 58 Year
  Sex: Female
  Weight: 68 kg

DRUGS (1)
  1. TIRZEPATIDE [Suspect]
     Active Substance: TIRZEPATIDE
     Indication: Weight decreased

REACTIONS (6)
  - Breast cancer female [None]
  - Vomiting [None]
  - Abdominal pain [None]
  - Metabolic acidosis [None]
  - Gastrointestinal necrosis [None]
  - Gastrointestinal necrosis [None]

NARRATIVE: CASE EVENT DATE: 20240707
